FAERS Safety Report 9233831 (Version 2)
Quarter: 2013Q2

REPORT INFORMATION
  Report Type: Report from Study
  Country: US (occurrence: US)
  Receive Date: 20130416
  Receipt Date: 20130425
  Transmission Date: 20140414
  Serious: Yes (Hospitalization)
  Sender: FDA-Public Use
  Company Number: US-ACTELION-A-NJ2013-82025

PATIENT
  Age: 61 Year
  Sex: Female

DRUGS (2)
  1. VENTAVIS [Suspect]
     Indication: PULMONARY ARTERIAL HYPERTENSION
     Dosage: 5 MCG,
     Route: 055
     Dates: start: 2008
  2. SILDENAFIL [Concomitant]

REACTIONS (2)
  - Device related infection [Recovering/Resolving]
  - Chronic obstructive pulmonary disease [Recovering/Resolving]
